FAERS Safety Report 17421420 (Version 2)
Quarter: 2020Q1

REPORT INFORMATION
  Report Type: Report from Study
  Country: US (occurrence: US)
  Receive Date: 20200214
  Receipt Date: 20200302
  Transmission Date: 20200409
  Serious: Yes (Hospitalization)
  Sender: FDA-Public Use
  Company Number: US-EXELIXIS-XL18420027274

PATIENT
  Age: 78 Year
  Sex: Male
  Weight: 91.62 kg

DRUGS (13)
  1. ATEZOLIZUMAB. [Suspect]
     Active Substance: ATEZOLIZUMAB
     Indication: NON-SMALL CELL LUNG CANCER
     Dosage: 1200 MG, Q3WEEKS
     Route: 042
     Dates: start: 20200114
  2. INVOKANA [Concomitant]
     Active Substance: CANAGLIFLOZIN
  3. LASIX [Concomitant]
     Active Substance: FUROSEMIDE
  4. LEVOTHYROXINE. [Concomitant]
     Active Substance: LEVOTHYROXINE
  5. NORVASC [Concomitant]
     Active Substance: AMLODIPINE BESYLATE
  6. LISINOPRIL. [Concomitant]
     Active Substance: LISINOPRIL
  7. TRESIBA [Concomitant]
     Active Substance: INSULIN DEGLUDEC
  8. XL184 [Suspect]
     Active Substance: CABOZANTINIB
     Indication: NON-SMALL CELL LUNG CANCER
     Dosage: 40 MG, QD
     Route: 048
     Dates: start: 20200114
  9. ECOTRIN [Concomitant]
     Active Substance: ASPIRIN
  10. METFORMIN [Concomitant]
     Active Substance: METFORMIN HYDROCHLORIDE
  11. PRAVASTATIN. [Concomitant]
     Active Substance: PRAVASTATIN
  12. HUMALOG [Concomitant]
     Active Substance: INSULIN LISPRO
  13. COREG [Concomitant]
     Active Substance: CARVEDILOL

REACTIONS (3)
  - Dyspnoea [Unknown]
  - Pleural effusion [Recovering/Resolving]
  - Failure to thrive [Unknown]

NARRATIVE: CASE EVENT DATE: 20200203
